FAERS Safety Report 17120051 (Version 1)
Quarter: 2019Q4

REPORT INFORMATION
  Report Type: Report from Study
  Country: DE (occurrence: DE)
  Receive Date: 20191206
  Receipt Date: 20191206
  Transmission Date: 20200122
  Serious: Yes (Other)
  Sender: FDA-Public Use
  Company Number: PHHY2015DE027007

PATIENT
  Sex: Female

DRUGS (3)
  1. PARACETAMOL [Concomitant]
     Active Substance: ACETAMINOPHEN
     Indication: TENSION HEADACHE
     Dosage: UNK
     Route: 065
     Dates: start: 20160111
  2. GILENYA [Suspect]
     Active Substance: FINGOLIMOD HYDROCHLORIDE
     Indication: MULTIPLE SCLEROSIS
     Dosage: 0.5 MG, QD
     Route: 048
     Dates: start: 20130204, end: 20140801
  3. GILENYA [Suspect]
     Active Substance: FINGOLIMOD HYDROCHLORIDE
     Dosage: QD
     Route: 048
     Dates: start: 20141016

REACTIONS (9)
  - Lymphocyte count decreased [Unknown]
  - Low density lipoprotein increased [Unknown]
  - White blood cell count decreased [Unknown]
  - Muscle spasticity [Unknown]
  - Gait disturbance [Recovered/Resolved]
  - High density lipoprotein increased [Unknown]
  - Rhinitis [Recovered/Resolved]
  - Blood cholesterol increased [Unknown]
  - Blood bilirubin decreased [Unknown]

NARRATIVE: CASE EVENT DATE: 20141018
